FAERS Safety Report 24675126 (Version 14)
Quarter: 2025Q3

REPORT INFORMATION
  Report Type: Spontaneous
  Country: US (occurrence: US)
  Receive Date: 20241128
  Receipt Date: 20250724
  Transmission Date: 20251021
  Serious: Yes (Hospitalization)
  Sender: SANDOZ
  Company Number: US-SANDOZ-SDZ2024US098412

PATIENT
  Sex: Female
  Weight: 8.98 kg

DRUGS (28)
  1. TREPROSTINIL [Suspect]
     Active Substance: TREPROSTINIL
     Indication: Pulmonary arterial hypertension
     Route: 042
     Dates: start: 2024
  2. TREPROSTINIL [Suspect]
     Active Substance: TREPROSTINIL
     Route: 042
     Dates: start: 2024
  3. TREPROSTINIL [Suspect]
     Active Substance: TREPROSTINIL
     Route: 042
     Dates: start: 20241107
  4. TREPROSTINIL [Suspect]
     Active Substance: TREPROSTINIL
     Route: 042
  5. TREPROSTINIL [Suspect]
     Active Substance: TREPROSTINIL
     Route: 042
     Dates: start: 20240711
  6. TREPROSTINIL [Suspect]
     Active Substance: TREPROSTINIL
     Route: 042
  7. TREPROSTINIL [Suspect]
     Active Substance: TREPROSTINIL
     Route: 042
     Dates: start: 20240711
  8. TREPROSTINIL [Suspect]
     Active Substance: TREPROSTINIL
     Route: 042
  9. WINREVAIR [Suspect]
     Active Substance: SOTATERCEPT-CSRK
     Indication: Product used for unknown indication
     Route: 065
  10. ACETAMINOPHEN [Concomitant]
     Active Substance: ACETAMINOPHEN
     Indication: Product used for unknown indication
     Route: 065
  11. AMOXICILLIN [Concomitant]
     Active Substance: AMOXICILLIN
     Indication: Product used for unknown indication
     Route: 065
  12. CLONIDINE HYDROCHLORIDE [Concomitant]
     Active Substance: CLONIDINE HYDROCHLORIDE
     Indication: Product used for unknown indication
     Route: 065
  13. CYPROHEPTADINE HYDROCHLORIDE [Concomitant]
     Active Substance: CYPROHEPTADINE HYDROCHLORIDE
     Indication: Product used for unknown indication
     Route: 065
  14. FAMOTIDINE [Concomitant]
     Active Substance: FAMOTIDINE
     Indication: Product used for unknown indication
     Route: 065
  15. FLUTICASONE PROPIONATE HFA [Concomitant]
     Active Substance: FLUTICASONE PROPIONATE
     Indication: Product used for unknown indication
     Route: 065
  16. FUROSEMIDE [Concomitant]
     Active Substance: FUROSEMIDE
     Indication: Product used for unknown indication
     Route: 065
  17. LASIX [Concomitant]
     Active Substance: FUROSEMIDE
     Indication: Product used for unknown indication
     Route: 065
  18. MELATONIN [Concomitant]
     Active Substance: MELATONIN
     Indication: Product used for unknown indication
     Route: 065
  19. METHADONE HYDROCHLORIDE [Concomitant]
     Active Substance: METHADONE HYDROCHLORIDE
     Indication: Product used for unknown indication
     Route: 065
  20. VITAMINS [Concomitant]
     Active Substance: VITAMINS
     Indication: Product used for unknown indication
     Route: 065
  21. VITAMINS [Concomitant]
     Active Substance: VITAMINS
     Indication: Product used for unknown indication
     Route: 065
  22. OXYCODONE HYDROCHLORIDE [Concomitant]
     Active Substance: OXYCODONE HYDROCHLORIDE
     Indication: Product used for unknown indication
     Route: 065
  23. POTASSIUM CHLORIDE [Concomitant]
     Active Substance: POTASSIUM CHLORIDE
     Indication: Product used for unknown indication
     Route: 065
  24. SILDENAFIL CITRATE [Concomitant]
     Active Substance: SILDENAFIL CITRATE
     Indication: Product used for unknown indication
     Route: 065
  25. SIMETHICONE (DIMETHICONE) [Concomitant]
     Active Substance: DIMETHICONE
     Indication: Product used for unknown indication
     Route: 065
  26. SODIUM CHLORIDE [Concomitant]
     Active Substance: SODIUM CHLORIDE
     Indication: Product used for unknown indication
     Route: 065
  27. TRACLEER [Concomitant]
     Active Substance: BOSENTAN
     Indication: Product used for unknown indication
     Route: 065
  28. WINREVAIR [Concomitant]
     Active Substance: SOTATERCEPT-CSRK
     Indication: Product used for unknown indication
     Route: 065

REACTIONS (11)
  - Oxygen saturation decreased [Unknown]
  - Complication associated with device [Unknown]
  - Viral infection [Unknown]
  - Respiratory tract infection [Unknown]
  - Rhinovirus infection [Unknown]
  - Respiratory disorder [Unknown]
  - Injection site discharge [Unknown]
  - Injection site haemorrhage [Unknown]
  - Infusion site swelling [Unknown]
  - Catheter site haemorrhage [Unknown]
  - Ear infection [Unknown]

NARRATIVE: CASE EVENT DATE: 20240101
